FAERS Safety Report 7187009-2 (Version None)
Quarter: 2010Q4

REPORT INFORMATION
  Report Type: 
  Country: None (occurrence: None)
  Receive Date: 20101222
  Receipt Date: 20100719
  Transmission Date: 20110411
  Serious: No
  Sender: FDA-Public Use
  Company Number: US-AMGEN-TCS418503

PATIENT

DRUGS (6)
  1. ENBREL [Suspect]
     Indication: RHEUMATOID ARTHRITIS
     Dosage: 50 MG, QWK
     Route: 058
     Dates: start: 20090323
  2. METHOTREXATE [Concomitant]
  3. SULFASALAZINE [Concomitant]
  4. PILOCARPINE [Concomitant]
  5. ERGOCALCIFEROL [Concomitant]
  6. ACETAMINOPHEN W/ CODEINE [Concomitant]

REACTIONS (7)
  - INJECTION SITE HAEMATOMA [None]
  - INJECTION SITE PAIN [None]
  - INJECTION SITE REACTION [None]
  - INJECTION SITE URTICARIA [None]
  - PERIODONTAL DISEASE [None]
  - PULPITIS DENTAL [None]
  - WRONG TECHNIQUE IN DRUG USAGE PROCESS [None]
